FAERS Safety Report 8152677-5 (Version None)
Quarter: 2012Q1

REPORT INFORMATION
  Report Type: 
  Country: None (occurrence: None)
  Receive Date: 20120221
  Receipt Date: 20120208
  Transmission Date: 20120608
  Serious: Yes (Death, Hospitalization, Other)
  Sender: FDA-Public Use
  Company Number: BR-GENZYME-RENA-1001416

PATIENT

DRUGS (5)
  1. FERROUS TARTRATE [Concomitant]
     Indication: PRODUCT USED FOR UNKNOWN INDICATION
     Dosage: 2X PER MONTH
     Route: 065
  2. RENAGEL [Suspect]
     Indication: HYPERPHOSPHATAEMIA
     Dosage: 4.8 G, QD
     Route: 048
     Dates: start: 20110101
  3. ENALAPRIL [Concomitant]
     Indication: PRODUCT USED FOR UNKNOWN INDICATION
     Dosage: 10 MG, UNK
     Route: 065
  4. EPOGEN [Concomitant]
     Indication: PRODUCT USED FOR UNKNOWN INDICATION
     Dosage: 12000 U, QW
     Route: 065
  5. SEVELAMER HYDROCHLORIDE [Suspect]
     Indication: HYPERPHOSPHATAEMIA
     Dosage: UNK
     Route: 065
     Dates: start: 20111001, end: 20111001

REACTIONS (5)
  - COMA [None]
  - PYREXIA [None]
  - ABDOMINAL PAIN UPPER [None]
  - DYSPEPSIA [None]
  - HAEMORRHAGIC STROKE [None]
